FAERS Safety Report 13511968 (Version 2)
Quarter: 2017Q2

REPORT INFORMATION
  Report Type: Report from Study
  Country: US (occurrence: US)
  Receive Date: 20170504
  Receipt Date: 20170607
  Transmission Date: 20170830
  Serious: Yes (Hospitalization, Other)
  Sender: FDA-Public Use
  Company Number: US-BAYER-2017-032950

PATIENT
  Age: 54 Year
  Sex: Female

DRUGS (2)
  1. STIVARGA [Suspect]
     Active Substance: REGORAFENIB
     Indication: COLORECTAL CANCER
     Dosage: DAILY DOSE 160 MG
     Route: 048
     Dates: start: 20170215, end: 201703
  2. STIVARGA [Suspect]
     Active Substance: REGORAFENIB
     Indication: COLORECTAL CANCER
     Dosage: 120 MG, DAILY 3 WEEKS ON/ 1 WEEK OFF
     Route: 048
     Dates: start: 20170501

REACTIONS (27)
  - Abdominal discomfort [None]
  - Bone pain [None]
  - Pain in extremity [None]
  - Pain in extremity [None]
  - Decreased appetite [None]
  - Ammonia increased [None]
  - Arthralgia [None]
  - Dysgeusia [None]
  - Abdominal discomfort [None]
  - Influenza [None]
  - Blister [None]
  - Cough [None]
  - Pyrexia [None]
  - Biliary drainage [None]
  - Chromaturia [None]
  - Fatigue [None]
  - Dysgeusia [None]
  - Myalgia [None]
  - Gastric infection [None]
  - Abdominal pain upper [None]
  - Blood pressure increased [Recovered/Resolved]
  - Skin exfoliation [None]
  - Pyrexia [None]
  - Fatigue [None]
  - Paraesthesia [None]
  - Rash [None]
  - Intentional product use issue [None]

NARRATIVE: CASE EVENT DATE: 2017
